FAERS Safety Report 11632186 (Version 1)
Quarter: 2015Q4

REPORT INFORMATION
  Report Type: Spontaneous
  Country: PT (occurrence: PT)
  Receive Date: 20151015
  Receipt Date: 20151015
  Transmission Date: 20160304
  Serious: No
  Sender: FDA-Public Use
  Company Number: PT-GLENMARK PHARMACEUTICALS INC, USA.-2015GMK019151

PATIENT
  Age: 60 Year
  Sex: Female

DRUGS (1)
  1. GABAPENTIN. [Suspect]
     Active Substance: GABAPENTIN
     Indication: BRACHIORADIAL PRURITUS
     Dosage: 900 MG, QD

REACTIONS (2)
  - Therapeutic response unexpected [Unknown]
  - Off label use [Unknown]
